FAERS Safety Report 15853367 (Version 1)
Quarter: 2019Q1

REPORT INFORMATION
  Report Type: Spontaneous
  Country: US (occurrence: US)
  Receive Date: 20190122
  Receipt Date: 20190122
  Transmission Date: 20190417
  Serious: No
  Sender: FDA-Public Use
  Company Number: US-SA-2019SA013141

PATIENT
  Age: 54 Year
  Sex: Female

DRUGS (1)
  1. LANTUS [Suspect]
     Active Substance: INSULIN GLARGINE
     Dosage: 80 UNITS OF LANTUS DAILY
     Route: 065
     Dates: start: 2010

REACTIONS (1)
  - Device defective [Unknown]
